FAERS Safety Report 9240940 (Version 1)
Quarter: 2013Q2

REPORT INFORMATION
  Report Type: Spontaneous
  Country: CO (occurrence: CO)
  Receive Date: 20130419
  Receipt Date: 20130419
  Transmission Date: 20140414
  Serious: Yes (Death)
  Sender: FDA-Public Use
  Company Number: CO-PFIZER INC-2013123602

PATIENT
  Age: 82 Year
  Sex: Male

DRUGS (1)
  1. CARDURAN [Suspect]
     Indication: PROPHYLAXIS
     Dosage: 4 MG, UNK
     Route: 048
     Dates: start: 2001, end: 20121112

REACTIONS (1)
  - Bone cancer [Fatal]
